FAERS Safety Report 19326459 (Version 4)
Quarter: 2022Q2

REPORT INFORMATION
  Report Type: Other
  Country: AR (occurrence: None)
  Receive Date: 20210528
  Receipt Date: 20220630
  Transmission Date: 20220721
  Serious: Yes (Other)
  Sender: FDA-Public Use
  Company Number: AR-ROCHE-2834116

PATIENT
  Age: 74 Year
  Sex: Female
  Weight: 72 kg

DRUGS (9)
  1. ATEZOLIZUMAB [Suspect]
     Active Substance: ATEZOLIZUMAB
     Indication: Non-small cell lung cancer
     Dosage: ON 10/OCT/2020, MOST RECENT DOSE OF ATEZOLIZUMAB (1200 MG) WAS RECEIVED PRIOR TO AE. ON 04/MAY/2021,
     Route: 041
     Dates: start: 20200928
  2. ACETAMINOPHEN [Concomitant]
     Active Substance: ACETAMINOPHEN
     Dates: start: 20200928, end: 20200928
  3. ACETAMINOPHEN [Concomitant]
     Active Substance: ACETAMINOPHEN
     Dates: start: 20201019, end: 20201019
  4. ATORVASTATIN [Concomitant]
     Active Substance: ATORVASTATIN
  5. RIVOTRIL [Concomitant]
     Active Substance: CLONAZEPAM
  6. TAXAGON [Concomitant]
  7. VALSARTAN [Concomitant]
     Active Substance: VALSARTAN
  8. OMEPRAZOLE [Concomitant]
     Active Substance: OMEPRAZOLE
  9. PACLITAXEL [Concomitant]
     Active Substance: PACLITAXEL

REACTIONS (1)
  - Hepatotoxicity [Recovered/Resolved]

NARRATIVE: CASE EVENT DATE: 20201027
